FAERS Safety Report 9387918 (Version 1)
Quarter: 2013Q3

REPORT INFORMATION
  Report Type: Spontaneous
  Country: DE (occurrence: DE)
  Receive Date: 20130708
  Receipt Date: 20130708
  Transmission Date: 20140515
  Serious: Yes (Life-Threatening)
  Sender: FDA-Public Use
  Company Number: DE-B.I. PHARMACEUTICALS,INC./RIDGEFIELD-2013-DE-01565DE

PATIENT
  Sex: Male

DRUGS (19)
  1. PRADAXA [Suspect]
     Indication: ATRIAL FIBRILLATION
     Dates: start: 20130528, end: 20130531
  2. ALLOPURINOL [Concomitant]
     Indication: HYPERURICAEMIA
     Dosage: 100 MG
  3. ALLOPURINOL [Concomitant]
     Indication: GOUT
  4. DOPADURA C [Concomitant]
     Indication: PARKINSONISM
     Dosage: STRENGTH 100/25 MG
     Dates: start: 2005
  5. PANTOPRAZOL [Concomitant]
     Indication: DYSPEPSIA
     Dosage: 20 MG
  6. PANTOPRAZOL [Concomitant]
     Indication: GASTROOESOPHAGEAL REFLUX DISEASE
  7. RAMIPRIL [Concomitant]
     Indication: CARDIAC FAILURE
     Dosage: 2.5 MG
  8. RAMIPRIL [Concomitant]
     Indication: RENAL FAILURE
  9. TORASEMID [Concomitant]
     Indication: CARDIAC FAILURE
     Dosage: 117 MG
  10. TORASEMID [Concomitant]
     Indication: RENAL FAILURE
  11. VALPROAT CHRONO [Concomitant]
     Indication: EPILEPSY
     Dosage: 500 MG
     Dates: start: 1987
  12. GABAPENTIN [Concomitant]
     Indication: POLYNEUROPATHY
     Dosage: 300 MG
  13. GABAPENTIN [Concomitant]
     Indication: NEURALGIA
  14. TAMSULOSIN [Concomitant]
     Indication: BENIGN PROSTATIC HYPERPLASIA
     Dosage: 0.4 MG
  15. TAMSULOSIN [Concomitant]
     Indication: BLADDER OUTLET OBSTRUCTION
  16. OXYCODON [Concomitant]
  17. MACROGOL [Concomitant]
     Dosage: AS REQUIRED
  18. XARELTO [Concomitant]
     Dosage: 15 MG
  19. XARELTO [Concomitant]
     Dosage: 20 MG
     Dates: start: 20130610

REACTIONS (5)
  - Dizziness [Recovered/Resolved]
  - Headache [Recovered/Resolved]
  - Confusional state [Recovered/Resolved]
  - Confusional state [Recovered/Resolved]
  - Nausea [Unknown]
